FAERS Safety Report 10006720 (Version 1)
Quarter: 2014Q1

REPORT INFORMATION
  Report Type: Spontaneous
  Country: US (occurrence: US)
  Receive Date: 20140313
  Receipt Date: 20140313
  Transmission Date: 20141002
  Serious: No
  Sender: FDA-Public Use
  Company Number: US-PFIZER INC-2014068579

PATIENT
  Sex: Male

DRUGS (1)
  1. GLIPIZIDE XL [Suspect]
     Dosage: 10 MG, UNK

REACTIONS (1)
  - Drug ineffective [Unknown]
